FAERS Safety Report 12797415 (Version 4)
Quarter: 2017Q4

REPORT INFORMATION
  Report Type: Report from Study
  Country: BR (occurrence: BR)
  Receive Date: 20160930
  Receipt Date: 20171229
  Transmission Date: 20180320
  Serious: Yes (Hospitalization, Other)
  Sender: FDA-Public Use
  Company Number: PHHY2016BR063585

PATIENT
  Age: 10 Year
  Sex: Female
  Weight: 28.3 kg

DRUGS (5)
  1. EXJADE [Suspect]
     Active Substance: DEFERASIROX
     Indication: SICKLE CELL ANAEMIA
     Dosage: 10 MG/KG (250 MG), QD
     Route: 048
     Dates: start: 20141027
  2. EXJADE [Suspect]
     Active Substance: DEFERASIROX
     Dosage: 10 MG/KG (250 MG), QD
     Route: 048
  3. EXJADE [Suspect]
     Active Substance: DEFERASIROX
     Dosage: 0.5 DF (500 MG), QD
     Route: 065
  4. HIDROXIUREA [Concomitant]
     Active Substance: HYDROXYUREA
     Indication: PRODUCT USED FOR UNKNOWN INDICATION
     Dosage: 8 DF, QW (2 DF 3 DAYS OF WEEK AND 1 DF 2 INTERCALATED DAYS OF WEEK)
     Route: 048
     Dates: start: 2013
  5. HYDREA [Concomitant]
     Active Substance: HYDROXYUREA
     Indication: PAIN
     Route: 065

REACTIONS (20)
  - Body height below normal [Unknown]
  - Headache [Unknown]
  - Arthralgia [Unknown]
  - Wrong technique in product usage process [Unknown]
  - Ear pain [Recovering/Resolving]
  - Cough [Unknown]
  - Pain in extremity [Unknown]
  - Gait inability [Recovered/Resolved]
  - Growth retardation [Unknown]
  - Malaise [Unknown]
  - Eating disorder [Unknown]
  - Back pain [Unknown]
  - Gait inability [Recovering/Resolving]
  - Fall [Unknown]
  - Blood iron increased [Unknown]
  - Sickle cell anaemia with crisis [Unknown]
  - Pneumonia [Unknown]
  - Limb discomfort [Unknown]
  - Weight decreased [Unknown]
  - Weight gain poor [Not Recovered/Not Resolved]

NARRATIVE: CASE EVENT DATE: 20160801
